FAERS Safety Report 25412899 (Version 3)
Quarter: 2025Q3

REPORT INFORMATION
  Report Type: Spontaneous
  Country: AR (occurrence: AR)
  Receive Date: 20250609
  Receipt Date: 20250708
  Transmission Date: 20251020
  Serious: Yes (Other)
  Sender: MYLAN
  Company Number: AR-MYLANLABS-2025M1038952

PATIENT
  Age: 17 Year
  Sex: Female

DRUGS (5)
  1. CLOZAPINE [Suspect]
     Active Substance: CLOZAPINE
     Indication: Product used for unknown indication
     Dates: start: 20250203, end: 20250701
  2. PAROXETINE [Concomitant]
     Active Substance: PAROXETINE
  3. LAMOTRIGINE [Concomitant]
     Active Substance: LAMOTRIGINE
  4. VALPROATE SODIUM [Concomitant]
     Active Substance: VALPROATE SODIUM
  5. BIPERIDEN [Concomitant]
     Active Substance: BIPERIDEN

REACTIONS (2)
  - Neutropenia [Recovered/Resolved]
  - Lymphocyte count increased [Recovering/Resolving]

NARRATIVE: CASE EVENT DATE: 20250412
